FAERS Safety Report 23417758 (Version 1)
Quarter: 2024Q1

REPORT INFORMATION
  Report Type: Spontaneous
  Country: US (occurrence: None)
  Receive Date: 20240118
  Receipt Date: 20240118
  Transmission Date: 20240409
  Serious: Yes (Hospitalization)
  Sender: FDA-Public Use
  Company Number: None

PATIENT
  Sex: Female

DRUGS (4)
  1. ADCIRCA [Suspect]
     Active Substance: TADALAFIL
     Indication: Pulmonary arterial hypertension
     Dosage: 40MG ONCE DIALY PO
     Route: 048
     Dates: start: 202103
  2. TYLENOL [Concomitant]
     Active Substance: ACETAMINOPHEN
  3. OPSUMIT [Concomitant]
     Active Substance: MACITENTAN
  4. REMODULIN [Concomitant]
     Active Substance: TREPROSTINIL

REACTIONS (5)
  - Diarrhoea [None]
  - Abdominal pain upper [None]
  - Headache [None]
  - Pain in jaw [None]
  - Therapy cessation [None]
